FAERS Safety Report 8406055 (Version 2)
Quarter: 2013Q2

REPORT INFORMATION
  Report Type: Spontaneous
  Country: US (occurrence: None)
  Receive Date: 20111227
  Receipt Date: 20120426
  Transmission Date: 20140414
  Serious: Yes (Other)
  Sender: FDA-Public Use
  Company Number: PHEH2011US008635

PATIENT
  Age: 36 Year
  Sex: Female

DRUGS (1)
  1. GILENYA [Suspect]
     Indication: MULTIPLE SCLEROSIS
     Dosage: 0.5 MG, QD, ORAL
     Route: 048
     Dates: start: 20110909, end: 20120105

REACTIONS (9)
  - HYPOAESTHESIA [None]
  - Diplopia [None]
  - Oedema peripheral [None]
  - Vision blurred [None]
  - Urinary tract infection [None]
  - Cystitis [None]
  - Lower respiratory tract infection [None]
  - Sneezing [None]
  - Cough [None]
